FAERS Safety Report 9264486 (Version 1)
Quarter: 2013Q2

REPORT INFORMATION
  Report Type: Spontaneous
  Country: AT (occurrence: AT)
  Receive Date: 20130501
  Receipt Date: 20130501
  Transmission Date: 20140414
  Serious: Yes (Other)
  Sender: FDA-Public Use
  Company Number: PHHY2013AT042304

PATIENT
  Sex: Male

DRUGS (1)
  1. SEDACORON [Suspect]

REACTIONS (1)
  - Mesenteric panniculitis [Unknown]
